FAERS Safety Report 5372671-7 (Version None)
Quarter: 2007Q2

REPORT INFORMATION
  Report Type: 
  Country: None (occurrence: None)
  Receive Date: 20070627
  Receipt Date: 20070614
  Transmission Date: 20071010
  Serious: Yes (Death, Other)
  Sender: FDA-Public Use
  Company Number: IN-GENENTECH-237334

PATIENT
  Sex: Female
  Weight: 45 kg

DRUGS (3)
  1. TRASTUZUMAB [Suspect]
     Indication: BREAST CANCER METASTATIC
     Dosage: 85.4 MG, 1/WEEK
     Route: 042
     Dates: start: 20070123, end: 20070130
  2. PACLITAXEL [Suspect]
     Indication: BREAST CANCER METASTATIC
     Dosage: 109.4 MG, 1/WEEK
     Route: 042
     Dates: start: 20070123, end: 20070130
  3. MYOCET [Suspect]
     Indication: BREAST CANCER METASTATIC
     Dosage: 68 MG, Q3W
     Route: 042
     Dates: start: 20070123, end: 20070123

REACTIONS (2)
  - DEATH [None]
  - DIARRHOEA [None]
